FAERS Safety Report 6496320-X (Version None)
Quarter: 2009Q4

REPORT INFORMATION
  Report Type: 
  Country: None (occurrence: None)
  Receive Date: 20091214
  Receipt Date: 20091207
  Transmission Date: 20100525
  Serious: Yes (Other)
  Sender: FDA-Public Use
  Company Number: US-BAYER-200917361BCC

PATIENT
  Sex: Female
  Weight: 122 kg

DRUGS (7)
  1. ALEVE (CAPLET) [Suspect]
     Indication: MIGRAINE
     Dosage: UNIT DOSE: 220 MG
     Route: 048
     Dates: end: 19990101
  2. ASCORBIC ACID [Concomitant]
     Route: 065
  3. VITAMIN B50 COMPLEX [Concomitant]
     Route: 065
  4. COUGH SYRUP [Concomitant]
     Route: 065
  5. UNKNOWN CALCIUM SUPPLEMENT [Concomitant]
     Route: 065
  6. UNKNOWN DRUG [Concomitant]
     Indication: CONTRACEPTION
     Route: 065
  7. ANTIHISTAMINE [Concomitant]
     Route: 065

REACTIONS (5)
  - EPISTAXIS [None]
  - GASTRIC HAEMORRHAGE [None]
  - MOUTH HAEMORRHAGE [None]
  - MUCOSAL HAEMORRHAGE [None]
  - VAGINAL HAEMORRHAGE [None]
